FAERS Safety Report 9325709 (Version 1)
Quarter: 2013Q2

REPORT INFORMATION
  Report Type: Spontaneous
  Country: AU (occurrence: AU)
  Receive Date: 20130604
  Receipt Date: 20130604
  Transmission Date: 20140414
  Serious: Yes (Other)
  Sender: FDA-Public Use
  Company Number: PHHY2013AU055027

PATIENT
  Age: 80 Year
  Sex: Male

DRUGS (3)
  1. EXJADE [Suspect]
     Indication: IRON OVERLOAD
     Dosage: UNK
  2. TRANEXAMIC ACID [Suspect]
     Dosage: UNK UKN, UNK
  3. DARBEPOETIN ALFA [Suspect]
     Dosage: UNK

REACTIONS (7)
  - Diabetes mellitus [Unknown]
  - Renal failure acute [Unknown]
  - Decreased appetite [Unknown]
  - Jaundice [Unknown]
  - Lethargy [Unknown]
  - Nausea [Unknown]
  - Liver function test abnormal [Unknown]
